FAERS Safety Report 9317582 (Version 2)
Quarter: 2013Q2

REPORT INFORMATION
  Report Type: Spontaneous
  Country: IT (occurrence: None)
  Receive Date: 20130524
  Receipt Date: 20130530
  Transmission Date: 20140414
  Serious: Yes (Other)
  Sender: FDA-Public Use
  Company Number: AUR-APL-2013-04231

PATIENT
  Age: 77 Year
  Sex: Male

DRUGS (5)
  1. LEVOFLOXACIN [Suspect]
     Indication: LUNG DISORDER
     Dosage: (2 DOSAGE FORMS, 1 D)
     Route: 048
     Dates: start: 20130504, end: 20130511
  2. ESOMEPRAZOLE MAGNESIUM TRIHYDRATE (ESOMEPRAZOLE) [Concomitant]
  3. FOLIC ACID (FOLIC ACID) [Concomitant]
  4. ALLOPURINOL [Concomitant]
  5. AMLODIPINE (AMLODIPINE) [Concomitant]

REACTIONS (5)
  - Diarrhoea [None]
  - Nausea [None]
  - Syncope [None]
  - Renal failure chronic [None]
  - Condition aggravated [None]
